FAERS Safety Report 7767923-7 (Version None)
Quarter: 2011Q3

REPORT INFORMATION
  Report Type: 
  Country: None (occurrence: None)
  Receive Date: 20110919
  Receipt Date: 20110909
  Transmission Date: 20111222
  Serious: Yes (Other)
  Sender: FDA-Public Use
  Company Number: 1000023767

PATIENT
  Age: 65 Year
  Sex: Male

DRUGS (6)
  1. BYSTOLIC [Suspect]
     Indication: HYPERTENSION
     Dosage: 2.5 MG (2.5 MG, 1 IN 1 D), ORAL
     Route: 048
     Dates: start: 20110912
  2. BYSTOLIC [Suspect]
     Indication: HYPERTENSION
     Dosage: 2.5 MG (2.5 MG, 1 IN 1 D), ORAL
     Route: 048
     Dates: start: 20100801, end: 20110501
  3. PRADAXA (DABIGATRAN ETEXILATE MESILATE) (DABIGATRAN ETEXILATE MESILATE [Concomitant]
  4. BYSTOLIC [Suspect]
     Indication: HYPERTENSION
     Dosage: 5 MG (5 MG, 1 IN 1 D), ORAL
     Route: 048
     Dates: start: 20110501, end: 20110911
  5. SIMVASTATIN [Suspect]
     Indication: BLOOD CHOLESTEROL INCREASED
     Dosage: 20 MG (20 MG, 1 IN 1 D), ORAL, 40 MG (40 MG, 1 IN 1 D), ORAL
     Route: 048
     Dates: end: 20110501
  6. SIMVASTATIN [Suspect]
     Indication: BLOOD CHOLESTEROL INCREASED
     Dosage: 20 MG (20 MG, 1 IN 1 D), ORAL, 40 MG (40 MG, 1 IN 1 D), ORAL
     Route: 048
     Dates: end: 20110501

REACTIONS (1)
  - ATRIAL FIBRILLATION [None]
